FAERS Safety Report 11982852 (Version 1)
Quarter: 2016Q1

REPORT INFORMATION
  Report Type: Spontaneous
  Country: GB (occurrence: GB)
  Receive Date: 20160201
  Receipt Date: 20160201
  Transmission Date: 20160526
  Serious: Yes (Hospitalization)
  Sender: FDA-Public Use
  Company Number: GB-RECORDATI RARE DISEASES-GB-R13005-16-00019

PATIENT
  Age: 51 Year

DRUGS (2)
  1. DACTINOMYCIN [Suspect]
     Active Substance: DACTINOMYCIN
     Indication: LEUKAEMIA RECURRENT
  2. DACTINOMYCIN [Suspect]
     Active Substance: DACTINOMYCIN
     Indication: ACUTE MYELOID LEUKAEMIA
     Route: 065
     Dates: start: 20151215, end: 20160111

REACTIONS (3)
  - Neoplasm skin [Unknown]
  - Off label use [Unknown]
  - Metaplasia [Unknown]

NARRATIVE: CASE EVENT DATE: 20151215
